FAERS Safety Report 13181520 (Version 1)
Quarter: 2017Q1

REPORT INFORMATION
  Report Type: Spontaneous
  Country: GB (occurrence: GB)
  Receive Date: 20170202
  Receipt Date: 20170202
  Transmission Date: 20170428
  Serious: Yes (Other)
  Sender: FDA-Public Use
  Company Number: GB-JNJFOC-20170125575

PATIENT
  Sex: Female

DRUGS (12)
  1. EPIRUBICIN [Suspect]
     Active Substance: EPIRUBICIN
     Indication: NEPHROBLASTOMA
     Dosage: MEAN CUMULATIVE DOSE 200 MG/M2
     Route: 065
  2. DOXORUBICIN HYDROCHLORIDE. [Suspect]
     Active Substance: DOXORUBICIN HYDROCHLORIDE
     Indication: OSTEOSARCOMA
     Dosage: MEAN CUMULATIVE DOSE 308 MG/M2
     Route: 065
  3. DAUNORUBICIN [Suspect]
     Active Substance: DAUNORUBICIN
     Indication: NEPHROBLASTOMA
     Dosage: MEAN CUMULATIVE DOSE 255 MG/M2
     Route: 065
  4. EPIRUBICIN [Suspect]
     Active Substance: EPIRUBICIN
     Indication: RHABDOMYOSARCOMA
     Dosage: MEAN CUMULATIVE DOSE 200 MG/M2
     Route: 065
  5. DAUNORUBICIN [Suspect]
     Active Substance: DAUNORUBICIN
     Indication: OSTEOSARCOMA
     Dosage: MEAN CUMULATIVE DOSE 255 MG/M2
     Route: 065
  6. DOXORUBICIN HYDROCHLORIDE. [Suspect]
     Active Substance: DOXORUBICIN HYDROCHLORIDE
     Indication: RHABDOMYOSARCOMA
     Dosage: MEAN CUMULATIVE DOSE 308 MG/M2
     Route: 065
  7. DOXORUBICIN HYDROCHLORIDE. [Suspect]
     Active Substance: DOXORUBICIN HYDROCHLORIDE
     Indication: NEPHROBLASTOMA
     Dosage: MEAN CUMULATIVE DOSE 308 MG/M2
     Route: 065
  8. DAUNORUBICIN [Suspect]
     Active Substance: DAUNORUBICIN
     Indication: RHABDOMYOSARCOMA
     Dosage: MEAN CUMULATIVE DOSE 255 MG/M2
     Route: 065
  9. EPIRUBICIN [Suspect]
     Active Substance: EPIRUBICIN
     Indication: OSTEOSARCOMA
     Dosage: MEAN CUMULATIVE DOSE 200 MG/M2
     Route: 065
  10. DOXORUBICIN HYDROCHLORIDE. [Suspect]
     Active Substance: DOXORUBICIN HYDROCHLORIDE
     Indication: BREAST CANCER
     Dosage: MEAN CUMULATIVE DOSE 308 MG/M2
     Route: 065
  11. DAUNORUBICIN [Suspect]
     Active Substance: DAUNORUBICIN
     Indication: BREAST CANCER
     Dosage: MEAN CUMULATIVE DOSE 255 MG/M2
     Route: 065
  12. EPIRUBICIN [Suspect]
     Active Substance: EPIRUBICIN
     Indication: BREAST CANCER
     Dosage: MEAN CUMULATIVE DOSE 200 MG/M2
     Route: 065

REACTIONS (2)
  - Cardiotoxicity [Unknown]
  - Left ventricular dysfunction [Unknown]
